FAERS Safety Report 4335431-1 (Version None)
Quarter: 2004Q2

REPORT INFORMATION
  Report Type: 
  Country: None (occurrence: None)
  Receive Date: 20040408
  Receipt Date: 20040408
  Transmission Date: 20050107
  Serious: Yes (Other)
  Sender: FDA-Public Use
  Company Number: None

PATIENT
  Age: 52 Year
  Sex: Female
  Weight: 83.9154 kg

DRUGS (3)
  1. AVELOX [Suspect]
     Indication: ACUTE SINUSITIS
     Dosage: 1 ONCE A ORAL TABLET DAY
     Route: 048
     Dates: start: 20040402, end: 20040404
  2. PREMARIN [Concomitant]
  3. ASPIRIN [Concomitant]

REACTIONS (7)
  - ABDOMINAL PAIN [None]
  - COLITIS [None]
  - GENITAL PRURITUS FEMALE [None]
  - NASAL DISCOMFORT [None]
  - ORAL DISCOMFORT [None]
  - PAIN [None]
  - RASH ERYTHEMATOUS [None]
